FAERS Safety Report 10862226 (Version 1)
Quarter: 2015Q1

REPORT INFORMATION
  Report Type: Spontaneous
  Country: FR (occurrence: FR)
  Receive Date: 20150224
  Receipt Date: 20150224
  Transmission Date: 20150721
  Serious: Yes (Other)
  Sender: FDA-Public Use
  Company Number: FR-TEVA-542396ISR

PATIENT
  Age: 58 Year
  Sex: Female
  Weight: 55 kg

DRUGS (1)
  1. CARBOPLATINE TEVA [Suspect]
     Active Substance: CARBOPLATIN
     Dosage: 460 MILLIGRAM DAILY;
     Route: 041
     Dates: start: 20150130, end: 20150130

REACTIONS (2)
  - Paraesthesia [Recovered/Resolved]
  - Hot flush [Recovered/Resolved]

NARRATIVE: CASE EVENT DATE: 20150130
